FAERS Safety Report 9777073 (Version 5)
Quarter: 2014Q1

REPORT INFORMATION
  Report Type: Report from Study
  Country: US (occurrence: US)
  Receive Date: 20131221
  Receipt Date: 20140325
  Transmission Date: 20141002
  Serious: Yes (Other)
  Sender: FDA-Public Use
  Company Number: US-ROCHE-1321855

PATIENT
  Sex: Female

DRUGS (5)
  1. LUCENTIS [Suspect]
     Indication: AGE-RELATED MACULAR DEGENERATION
     Route: 050
  2. LUCENTIS [Suspect]
     Route: 050
     Dates: start: 20131209
  3. AVASTIN [Suspect]
     Indication: AGE-RELATED MACULAR DEGENERATION
     Route: 050
  4. BETADINE [Suspect]
     Indication: PAIN
     Route: 065
  5. ALLEGRA [Concomitant]
     Indication: HYPERSENSITIVITY

REACTIONS (10)
  - Eye infection staphylococcal [Unknown]
  - Suspected transmission of an infectious agent via product [Unknown]
  - Eye pruritus [Recovered/Resolved]
  - Hypersensitivity [Recovered/Resolved]
  - Visual acuity reduced [Not Recovered/Not Resolved]
  - Pain [Recovered/Resolved]
  - Eye pain [Recovered/Resolved]
  - Macular hole [Unknown]
  - Drug dose omission [Unknown]
  - Off label use [Unknown]
